FAERS Safety Report 9046200 (Version 2)
Quarter: 2013Q2

REPORT INFORMATION
  Report Type: Spontaneous
  Country: US (occurrence: US)
  Receive Date: 20130201
  Receipt Date: 20130521
  Transmission Date: 20140414
  Serious: Yes (Disabling, Other)
  Sender: FDA-Public Use
  Company Number: US-BAYER-2013-012721

PATIENT
  Age: 33 Year
  Sex: Male

DRUGS (1)
  1. AVELOX [Suspect]
     Indication: PNEUMONIA INFLUENZAL
     Dosage: 400 MG, QD
     Route: 048

REACTIONS (6)
  - Clostridium difficile infection [None]
  - Diarrhoea [None]
  - Pyrexia [None]
  - Headache [None]
  - Respiratory tract congestion [None]
  - Vomiting [None]
